FAERS Safety Report 5072532-7 (Version None)
Quarter: 2006Q3

REPORT INFORMATION
  Report Type: 
  Country: None (occurrence: None)
  Receive Date: 20060801
  Receipt Date: 20060720
  Transmission Date: 20061208
  Serious: Yes (Hospitalization)
  Sender: FDA-Public Use
  Company Number: 2006-01468

PATIENT
  Age: 63 Year

DRUGS (10)
  1. VELCADE [Suspect]
     Indication: MULTIPLE MYELOMA
     Dosage: 8.40 MG, INTRAVENOUS
     Route: 042
  2. DOXORUBICIN HCL [Suspect]
     Indication: MULTIPLE MYELOMA
     Dosage: 57.60 MG,
     Dates: start: 20060610, end: 20060613
  3. DEXAMETHASONE TAB [Suspect]
     Indication: MULTIPLE MYELOMA
     Dosage: 480.00 MG,
     Dates: start: 20060610, end: 20060629
  4. METAMIZOLE SODIUM            (METAMIZOLE SODIUM) DROP [Concomitant]
  5. TRAMADOL HCL [Concomitant]
  6. PANTOZOL (PANTOPRAZOLE SODIUM) [Concomitant]
  7. FUROSEMIDE [Concomitant]
  8. NOVALGIN (METAMIZOLE SODIUM) [Concomitant]
  9. ALLOPURINOL [Concomitant]
  10. PASPERTIN   (METOCLOPRAMIDE HYDROCHLORIDE) [Concomitant]

REACTIONS (1)
  - HEPATITIS [None]
